FAERS Safety Report 5723731-X (Version None)
Quarter: 2008Q2

REPORT INFORMATION
  Report Type: 
  Country: None (occurrence: None)
  Receive Date: 20080429
  Receipt Date: 20080429
  Transmission Date: 20081010
  Serious: Yes (Hospitalization)
  Sender: FDA-Public Use
  Company Number: None

PATIENT
  Age: 21 Year
  Sex: Female
  Weight: 69 kg

DRUGS (2)
  1. ACETAMINOPHEN [Suspect]
     Indication: SUICIDE ATTEMPT
     Dates: start: 20080426, end: 20080427
  2. IBUPROFEN TABLETS [Suspect]
     Indication: SUICIDE ATTEMPT
     Dosage: 5600 MG ONCE PO
     Route: 048
     Dates: start: 20080426, end: 20080427

REACTIONS (5)
  - ABDOMINAL PAIN [None]
  - DEPRESSION [None]
  - INCORRECT DOSE ADMINISTERED [None]
  - NAUSEA [None]
  - VOMITING [None]
